FAERS Safety Report 18974885 (Version 3)
Quarter: 2021Q2

REPORT INFORMATION
  Report Type: Spontaneous
  Country: US (occurrence: US)
  Receive Date: 20210305
  Receipt Date: 20210609
  Transmission Date: 20210717
  Serious: Yes (Hospitalization, Other)
  Sender: FDA-Public Use
  Company Number: US-BRISTOL-MYERS SQUIBB COMPANY-BMS-2021-018816

PATIENT
  Age: 56 Year
  Sex: Female
  Weight: 73.48 kg

DRUGS (7)
  1. FENTANYL. [Concomitant]
     Active Substance: FENTANYL
     Indication: PRODUCT USED FOR UNKNOWN INDICATION
     Dosage: PATCH 12MCGHR EVERY 3 DAYS 72 HOURS
     Route: 065
  2. KEPPRA [Concomitant]
     Active Substance: LEVETIRACETAM
     Indication: PRODUCT USED FOR UNKNOWN INDICATION
     Dosage: 100 MILLIGRAM, BID
     Route: 065
  3. PERCOCET [Concomitant]
     Active Substance: ACETAMINOPHEN\OXYCODONE HYDROCHLORIDE
     Indication: PRODUCT USED FOR UNKNOWN INDICATION
     Dosage: 10MG AS NEEDED AND REQUESTER STATED THAT HE WAS GIVING THE CONSUMER UP TO 55MG
     Route: 065
  4. XGEVA [Concomitant]
     Active Substance: DENOSUMAB
     Indication: BONE LOSS
     Route: 065
  5. HEPARIN [Concomitant]
     Active Substance: HEPARIN SODIUM
     Indication: THROMBOSIS
     Dosage: DRIP
     Route: 065
  6. OPDIVO [Suspect]
     Active Substance: NIVOLUMAB
     Indication: RENAL CELL CARCINOMA STAGE IV
     Dosage: EVERY 3 WEEKS
     Route: 042
     Dates: start: 20210202
  7. YERVOY [Suspect]
     Active Substance: IPILIMUMAB
     Indication: RENAL CELL CARCINOMA STAGE IV
     Dosage: EVERY 3 WEEKS
     Route: 042
     Dates: start: 20210202

REACTIONS (7)
  - Peripheral swelling [Unknown]
  - Decubitus ulcer [Unknown]
  - Pain in extremity [Unknown]
  - Humerus fracture [Recovering/Resolving]
  - Alopecia [Unknown]
  - Hip fracture [Unknown]
  - Immune system disorder [Unknown]

NARRATIVE: CASE EVENT DATE: 20210216
